FAERS Safety Report 13305520 (Version 1)
Quarter: 2017Q1

REPORT INFORMATION
  Report Type: Spontaneous
  Country: GB (occurrence: GB)
  Receive Date: 20170308
  Receipt Date: 20170308
  Transmission Date: 20170428
  Serious: Yes (Hospitalization)
  Sender: FDA-Public Use
  Company Number: GB-AUROBINDO-AUR-APL-2017-30396

PATIENT
  Age: 60 Year
  Sex: Male

DRUGS (1)
  1. GABAPENTIN CAPSULES, HARD 300MG [Suspect]
     Active Substance: GABAPENTIN
     Indication: POST PROCEDURAL COMPLICATION
     Dosage: 300MG, 300 MG 3 OR 4 DOSE
     Route: 065

REACTIONS (1)
  - Pneumonia [Unknown]
